FAERS Safety Report 7793195-3 (Version None)
Quarter: 2011Q4

REPORT INFORMATION
  Report Type: 
  Country: None (occurrence: None)
  Receive Date: 20111003
  Receipt Date: 20110929
  Transmission Date: 20120403
  Serious: Yes (Hospitalization)
  Sender: FDA-Public Use
  Company Number: US-ABBOTT-11P-163-0859160-00

PATIENT

DRUGS (1)
  1. HUMIRA [Suspect]
     Indication: CROHN'S DISEASE

REACTIONS (1)
  - HOSPITALISATION [None]
